FAERS Safety Report 16523132 (Version 1)
Quarter: 2019Q3

REPORT INFORMATION
  Report Type: Spontaneous
  Country: CA (occurrence: CA)
  Receive Date: 20190703
  Receipt Date: 20190703
  Transmission Date: 20191004
  Serious: Yes (Hospitalization, Congenital Anomaly)
  Sender: FDA-Public Use
  Company Number: CA-TEVA-2019-CA-1070485

PATIENT
  Sex: Female

DRUGS (1)
  1. PAROXETINE HYDROCHLORIDE. [Suspect]
     Active Substance: PAROXETINE HYDROCHLORIDE
     Indication: SLEEP DISORDER
     Route: 064

REACTIONS (7)
  - Exposure via breast milk [Recovered/Resolved]
  - Foetal exposure during pregnancy [Recovered/Resolved]
  - Gastric cyst [Recovered/Resolved]
  - Gastrointestinal disorder [Recovered/Resolved]
  - Ovarian cyst [Recovered/Resolved]
  - Abdominal wall cyst [Recovered/Resolved]
  - Pelvic cyst [Recovered/Resolved]
